FAERS Safety Report 21135217 (Version 3)
Quarter: 2023Q1

REPORT INFORMATION
  Report Type: Report from Study
  Country: BR (occurrence: BR)
  Receive Date: 20220727
  Receipt Date: 20230316
  Transmission Date: 20230417
  Serious: Yes (Other)
  Sender: FDA-Public Use
  Company Number: BR-JNJFOC-20220632497

PATIENT
  Age: 32 Year
  Sex: Female

DRUGS (10)
  1. SIMPONI [Suspect]
     Active Substance: GOLIMUMAB
     Indication: Ankylosing spondylitis
     Route: 058
     Dates: start: 20160808, end: 202204
  2. SIMPONI [Suspect]
     Active Substance: GOLIMUMAB
  3. TRAMADOL [Concomitant]
     Active Substance: TRAMADOL
  4. PREGABALIN [Concomitant]
     Active Substance: PREGABALIN
  5. SULFASALAZINE [Concomitant]
     Active Substance: SULFASALAZINE
  6. PROGESTERONE [Concomitant]
     Active Substance: PROGESTERONE
  7. VITAMIN B12 [Concomitant]
     Active Substance: CYANOCOBALAMIN
  8. FOLIC ACID [Concomitant]
     Active Substance: FOLIC ACID
  9. FERROUS SULFATE [Concomitant]
     Active Substance: FERROUS SULFATE
  10. ERGOCALCIFEROL [Concomitant]
     Active Substance: ERGOCALCIFEROL

REACTIONS (4)
  - In vitro fertilisation [Unknown]
  - Anaemia of pregnancy [Recovering/Resolving]
  - Exposure during pregnancy [Recovered/Resolved]
  - COVID-19 [Recovered/Resolved]

NARRATIVE: CASE EVENT DATE: 20210101
